FAERS Safety Report 4892494-2 (Version None)
Quarter: 2006Q1

REPORT INFORMATION
  Report Type: 
  Country: None (occurrence: None)
  Receive Date: 20060125
  Receipt Date: 20060125
  Transmission Date: 20060701
  Serious: No
  Sender: FDA-Public Use
  Company Number: None

PATIENT
  Sex: Male
  Weight: 81.6475 kg

DRUGS (2)
  1. ZICAM GEL NASAL SPRAY [Suspect]
     Indication: NASOPHARYNGITIS
     Dosage: SEE IMAGE
     Route: 045
     Dates: start: 20060105, end: 20060105
  2. ZICAM GEL NASAL SPRAY [Suspect]
     Indication: RHINORRHOEA
     Dosage: SEE IMAGE
     Route: 045
     Dates: start: 20060105, end: 20060105

REACTIONS (3)
  - HYPOSMIA [None]
  - RHINALGIA [None]
  - SINUS HEADACHE [None]
